FAERS Safety Report 5407122-7 (Version None)
Quarter: 2007Q3

REPORT INFORMATION
  Report Type: 
  Country: None (occurrence: None)
  Receive Date: 20070803
  Receipt Date: 20070803
  Transmission Date: 20080115
  Serious: Yes (Hospitalization)
  Sender: FDA-Public Use
  Company Number: None

PATIENT
  Age: 79 Year
  Sex: Male

DRUGS (1)
  1. HEPARIN [Suspect]
     Indication: CORONARY ARTERY DISEASE
     Dosage: OTHER IV
     Route: 042
     Dates: start: 20070618, end: 20070619

REACTIONS (1)
  - THROMBOCYTOPENIA [None]
